FAERS Safety Report 23707390 (Version 3)
Quarter: 2024Q4

REPORT INFORMATION
  Report Type: Spontaneous
  Country: ES (occurrence: ES)
  Receive Date: 20240404
  Receipt Date: 20241030
  Transmission Date: 20250115
  Serious: Yes (Other)
  Sender: ROCHE
  Company Number: ES-BIOCON BIOLOGICS LIMITED-BBL2024001927

PATIENT
  Sex: Male

DRUGS (5)
  1. BEVACIZUMAB [Suspect]
     Active Substance: BEVACIZUMAB
     Indication: Hereditary haemorrhagic telangiectasia
     Dosage: INDUCTION
     Route: 065
     Dates: start: 202202
  2. BEVACIZUMAB [Suspect]
     Active Substance: BEVACIZUMAB
     Route: 065
  3. BEVACIZUMAB [Suspect]
     Active Substance: BEVACIZUMAB
     Dosage: 5 MILLIGRAM/KILOGRAM, Q2W MAINTENANCE
     Route: 065
  4. BEVACIZUMAB [Suspect]
     Active Substance: BEVACIZUMAB
     Dosage: 5 MILLIGRAM/KILOGRAM, 4-12 WEEKS
     Route: 065
  5. IRON [Concomitant]
     Active Substance: IRON
     Dosage: MONTHLY

REACTIONS (4)
  - Renal failure [Unknown]
  - Hypertension [Unknown]
  - Proteinuria [Unknown]
  - Off label use [Unknown]
